FAERS Safety Report 6818884-6 (Version None)
Quarter: 2010Q3

REPORT INFORMATION
  Report Type: 
  Country: None (occurrence: None)
  Receive Date: 20100707
  Receipt Date: 20100628
  Transmission Date: 20110219
  Serious: Yes (Hospitalization, Other)
  Sender: FDA-Public Use
  Company Number: US-BIOGENIDEC-2009BI041026

PATIENT
  Age: 60 Year
  Sex: Female

DRUGS (3)
  1. AVONEX [Suspect]
     Indication: MULTIPLE SCLEROSIS
     Route: 030
     Dates: start: 19980415, end: 20090902
  2. AVONEX [Suspect]
     Route: 030
     Dates: start: 20100601
  3. VICODIN [Concomitant]

REACTIONS (3)
  - HEPATIC CIRRHOSIS [None]
  - LIVER INJURY [None]
  - OEDEMA PERIPHERAL [None]
